FAERS Safety Report 7827274-9 (Version None)
Quarter: 2011Q4

REPORT INFORMATION
  Report Type: 
  Country: None (occurrence: None)
  Receive Date: 20111020
  Receipt Date: 20111013
  Transmission Date: 20120403
  Serious: Yes (Hospitalization)
  Sender: FDA-Public Use
  Company Number: US-JNJFOC-20111006243

PATIENT
  Sex: Female
  Weight: 64.41 kg

DRUGS (11)
  1. SIMPONI [Suspect]
     Indication: RHEUMATOID ARTHRITIS
     Route: 058
     Dates: start: 20091001
  2. LYRICA [Suspect]
     Indication: FIBROMYALGIA
     Route: 065
     Dates: end: 20100101
  3. TRAZODONE HYDROCHLORIDE [Concomitant]
     Indication: SLEEP DISORDER
     Route: 048
     Dates: start: 19960101
  4. CALAN [Concomitant]
     Indication: BLOOD PRESSURE ABNORMAL
     Route: 048
     Dates: start: 20050101
  5. PRAVASTATIN [Concomitant]
     Indication: BLOOD CHOLESTEROL
     Route: 048
  6. TRIAMTERENE AND HYDROCHLOROTHIAZIDE [Concomitant]
     Indication: BLOOD PRESSURE ABNORMAL
     Route: 048
  7. PLAQUENIL [Concomitant]
     Indication: CONNECTIVE TISSUE DISORDER
     Route: 048
     Dates: start: 20080101
  8. SAVELLA [Concomitant]
     Indication: FIBROMYALGIA
     Dates: start: 20100101
  9. BENAZEPRIL HYDROCHLORIDE [Concomitant]
     Indication: BLOOD PRESSURE ABNORMAL
     Route: 048
     Dates: start: 20090101
  10. SULFASALAZINE [Concomitant]
     Indication: ARTHRITIS
     Route: 048
     Dates: start: 20020101
  11. NAPROXEN [Concomitant]
     Indication: ARTHRITIS
     Route: 048
     Dates: start: 19960101

REACTIONS (5)
  - DRUG ERUPTION [None]
  - BACK DISORDER [None]
  - DRUG DOSE OMISSION [None]
  - DEVICE MALFUNCTION [None]
  - IMPAIRED HEALING [None]
